FAERS Safety Report 9275593 (Version 1)
Quarter: 2013Q2

REPORT INFORMATION
  Report Type: Spontaneous
  Country: DE (occurrence: DE)
  Receive Date: 20130507
  Receipt Date: 20130507
  Transmission Date: 20140414
  Serious: Yes (Death, Other)
  Sender: FDA-Public Use
  Company Number: PHHY2013DE042312

PATIENT
  Age: 80 Year
  Sex: Female

DRUGS (2)
  1. VALPROIC ACID [Suspect]
     Indication: EPILEPSY
  2. PHENOBARBITAL [Concomitant]
     Indication: EPILEPSY

REACTIONS (3)
  - Ataxia [Fatal]
  - Vertigo [Fatal]
  - Encephalopathy [Unknown]
